FAERS Safety Report 7817047-5 (Version None)
Quarter: 2011Q4

REPORT INFORMATION
  Report Type: 
  Country: None (occurrence: None)
  Receive Date: 20111014
  Receipt Date: 20111014
  Transmission Date: 20120403
  Serious: Yes (Other)
  Sender: FDA-Public Use
  Company Number: None

PATIENT
  Age: 24 Year
  Sex: Male
  Weight: 136.0791 kg

DRUGS (2)
  1. XANAX [Suspect]
     Indication: BIPOLAR I DISORDER
     Dosage: 3 MG 3X/DAY ORAL
     Route: 048
     Dates: start: 20100101, end: 20110615
  2. XANAX [Suspect]
     Indication: PANIC ATTACK
     Dosage: 3 MG 3X/DAY ORAL
     Route: 048
     Dates: start: 20100101, end: 20110615

REACTIONS (7)
  - DYSSTASIA [None]
  - PAIN [None]
  - GAIT DISTURBANCE [None]
  - VITAMIN B6 INCREASED [None]
  - DEPRESSION [None]
  - METABOLIC DISORDER [None]
  - ARTHRALGIA [None]
